FAERS Safety Report 6580024-9 (Version None)
Quarter: 2010Q1

REPORT INFORMATION
  Report Type: 
  Country: None (occurrence: None)
  Receive Date: 20100212
  Receipt Date: 20100208
  Transmission Date: 20100710
  Serious: Yes (Death)
  Sender: FDA-Public Use
  Company Number: BE-MERCK-1002BEL00007

PATIENT
  Age: 26 Year
  Sex: Male
  Weight: 80 kg

DRUGS (8)
  1. CANCIDAS [Suspect]
     Indication: ASPERGILLOSIS
     Route: 042
     Dates: start: 20070624, end: 20070624
  2. CANCIDAS [Suspect]
     Route: 042
     Dates: start: 20070625, end: 20070627
  3. CANCIDAS [Suspect]
     Route: 042
     Dates: start: 20070927, end: 20071015
  4. MEROPENEM [Concomitant]
     Indication: BACTERIAL INFECTION
     Route: 041
     Dates: start: 20071126, end: 20070101
  5. TEICOPLANIN [Concomitant]
     Indication: BACTERIAL INFECTION
     Route: 042
     Dates: start: 20071205, end: 20071205
  6. VORICONAZOLE [Concomitant]
     Route: 048
     Dates: start: 20071021, end: 20071205
  7. VORICONAZOLE [Concomitant]
     Route: 048
     Dates: start: 20070628, end: 20070629
  8. VORICONAZOLE [Concomitant]
     Route: 048
     Dates: start: 20070623, end: 20070623

REACTIONS (1)
  - BACTERIAL INFECTION [None]
